FAERS Safety Report 9837199 (Version 1)
Quarter: 2013Q4

REPORT INFORMATION
  Report Type: Spontaneous
  Country: US (occurrence: None)
  Receive Date: 20131121
  Receipt Date: 20131121
  Transmission Date: 20140711
  Serious: Yes (Other)
  Sender: FDA-Public Use
  Company Number: 1000049142

PATIENT
  Age: 72 Year
  Sex: Male

DRUGS (4)
  1. TUDORZA PRESSAIR [Suspect]
     Indication: CHRONIC OBSTRUCTIVE PULMONARY DISEASE
     Route: 048
     Dates: start: 201305
  2. QNASAL (BECLOMETHASONE DIPROPIONATE) [Concomitant]
  3. ZYRTEC (CETIRIZINE HYDROCHLORIDE) [Concomitant]
  4. NEXIUM (ESOMEPRAZOLE) [Concomitant]

REACTIONS (2)
  - Drug ineffective [None]
  - Dyspnoea [None]
